FAERS Safety Report 5399868-4 (Version None)
Quarter: 2007Q3

REPORT INFORMATION
  Report Type: 
  Country: None (occurrence: None)
  Receive Date: 20070730
  Receipt Date: 20070718
  Transmission Date: 20080115
  Serious: Yes (Other)
  Sender: FDA-Public Use
  Company Number: PHHO2007JP12209

PATIENT
  Age: 25 Year
  Sex: Female

DRUGS (1)
  1. PABRON NASAL INFECTION CAPSULE [Suspect]
     Indication: SEASONAL ALLERGY
     Dosage: 4DF
     Route: 048

REACTIONS (4)
  - DIZZINESS [None]
  - MALAISE [None]
  - OVERDOSE [None]
  - SOMNOLENCE [None]
